FAERS Safety Report 8052304-1 (Version None)
Quarter: 2012Q1

REPORT INFORMATION
  Report Type: 
  Country: None (occurrence: None)
  Receive Date: 20120118
  Receipt Date: 20120112
  Transmission Date: 20120608
  Serious: Yes (Hospitalization)
  Sender: FDA-Public Use
  Company Number: DE-ABBOTT-11P-062-0856519-00

PATIENT
  Age: 29 Year
  Sex: Male
  Weight: 110 kg

DRUGS (7)
  1. AZATHIOPRINE [Concomitant]
     Route: 048
     Dates: start: 20101101
  2. HUMIRA [Suspect]
     Indication: CROHN'S DISEASE
     Route: 058
     Dates: start: 20110418, end: 20110512
  3. MESALAMINE [Suspect]
     Indication: CROHN'S DISEASE
     Route: 048
     Dates: start: 20110920
  4. PREDNISONE TAB [Concomitant]
     Indication: CROHN'S DISEASE
     Route: 048
     Dates: start: 20110301
  5. AZATHIOPRINE [Suspect]
     Indication: CROHN'S DISEASE
     Route: 048
     Dates: start: 20101115, end: 20111215
  6. CALCIUM CARBONATE [Concomitant]
     Indication: PRODUCT USED FOR UNKNOWN INDICATION
     Route: 048
     Dates: start: 20110301
  7. PANTOPRAZOLE [Concomitant]
     Indication: PRODUCT USED FOR UNKNOWN INDICATION

REACTIONS (2)
  - ENTEROCUTANEOUS FISTULA [None]
  - ILEAL STENOSIS [None]
